FAERS Safety Report 21946350 (Version 1)
Quarter: 2023Q1

REPORT INFORMATION
  Report Type: Spontaneous
  Country: US (occurrence: None)
  Receive Date: 20230202
  Receipt Date: 20230202
  Transmission Date: 20230418
  Serious: No
  Sender: FDA-Public Use
  Company Number: US-Merck Healthcare KGaA-9380749

PATIENT
  Age: 82 Year
  Sex: Male

DRUGS (1)
  1. BAVENCIO [Suspect]
     Active Substance: AVELUMAB
     Indication: Ureteric cancer
     Route: 042
     Dates: start: 20221229

REACTIONS (1)
  - Fatigue [Unknown]
